FAERS Safety Report 22634974 (Version 1)
Quarter: 2023Q2

REPORT INFORMATION
  Report Type: Spontaneous
  Country: US (occurrence: None)
  Receive Date: 20230622
  Receipt Date: 20230622
  Transmission Date: 20230721
  Serious: Yes (unspecified)
  Sender: FDA-Public Use
  Company Number: None

PATIENT
  Age: 77 Year
  Sex: Female
  Weight: 43 kg

DRUGS (1)
  1. HEPARIN SODIUM AND DEXTROSE [Suspect]
     Active Substance: HEPARIN SODIUM
     Indication: Atrial fibrillation
     Route: 041

REACTIONS (2)
  - Incorrect dose administered [None]
  - Incorrect drug administration rate [None]

NARRATIVE: CASE EVENT DATE: 20230622
